FAERS Safety Report 4499814-1 (Version None)
Quarter: 2004Q4

REPORT INFORMATION
  Report Type: 
  Country: None (occurrence: None)
  Receive Date: 20041112
  Receipt Date: 20041104
  Transmission Date: 20050328
  Serious: Yes (Other)
  Sender: FDA-Public Use
  Company Number: PHNU2004DE03754

PATIENT
  Sex: Female

DRUGS (2)
  1. LAMISIL [Suspect]
     Indication: ONYCHOMYCOSIS
     Route: 048
     Dates: start: 20031101, end: 20031101
  2. SILICIA DRAGEES [Suspect]
     Dosage: UNK, PRN
     Dates: start: 20031101

REACTIONS (16)
  - ARTHRALGIA [None]
  - ATROPHY [None]
  - CHEST DISCOMFORT [None]
  - DRUG INTERACTION [None]
  - DYSGEUSIA [None]
  - HUNGER [None]
  - HYPOAESTHESIA [None]
  - HYPOVENTILATION [None]
  - INTERVERTEBRAL DISC PROTRUSION [None]
  - MUSCLE CRAMP [None]
  - ORAL DYSAESTHESIA [None]
  - PERIPHERAL COLDNESS [None]
  - PERIPHERAL VASCULAR DISORDER [None]
  - RENAL PAIN [None]
  - TENDON DISORDER [None]
  - WEIGHT DECREASED [None]
